FAERS Safety Report 4853152-3 (Version None)
Quarter: 2005Q4

REPORT INFORMATION
  Report Type: 
  Country: None (occurrence: None)
  Receive Date: 20051212
  Receipt Date: 20051201
  Transmission Date: 20060501
  Serious: Yes (Death, Other)
  Sender: FDA-Public Use
  Company Number: 2005JP001937

PATIENT
  Age: 92 Year
  Sex: Female
  Weight: 36.7 kg

DRUGS (7)
  1. FUNGUARD                    (MICAFUNGIN) [Suspect]
     Indication: ASPERGILLOMA
     Dosage: 100.00 MG, UID/QD, IV DRIP
     Route: 041
     Dates: start: 20050921
  2. DOGMATYL                           (SULPIRIDE) [Concomitant]
  3. ITIZOLE         (ITRACONAZOLE) [Concomitant]
  4. PHYSIO 35 [Concomitant]
  5. VITACIMIN [Concomitant]
  6. ROCEPHIN [Concomitant]
  7. LASIX [Concomitant]

REACTIONS (8)
  - CARDIAC FAILURE [None]
  - CHOLECYSTITIS ACUTE [None]
  - DEHYDRATION [None]
  - DEPRESSED LEVEL OF CONSCIOUSNESS [None]
  - HUNGER [None]
  - HYPONATRAEMIA [None]
  - ORAL INTAKE REDUCED [None]
  - RESPIRATORY FAILURE [None]
